FAERS Safety Report 19309819 (Version 2)
Quarter: 2021Q2

REPORT INFORMATION
  Report Type: Spontaneous
  Country: GB (occurrence: GB)
  Receive Date: 20210526
  Receipt Date: 20210622
  Transmission Date: 20210717
  Serious: Yes (Life-Threatening, Hospitalization, Other)
  Sender: FDA-Public Use
  Company Number: GB-AUROBINDO-AUR-APL-2021-021732

PATIENT
  Age: 30 Year
  Sex: Female

DRUGS (1)
  1. PARACETAMOL [Suspect]
     Active Substance: ACETAMINOPHEN
     Indication: PRODUCT USED FOR UNKNOWN INDICATION
     Dosage: 30 GRAM
     Route: 065

REACTIONS (8)
  - Overdose [Recovered/Resolved]
  - Nausea [Recovering/Resolving]
  - Coagulopathy [Recovered/Resolved]
  - Acute hepatic failure [Recovered/Resolved]
  - Confusional state [Recovering/Resolving]
  - Jaundice [Recovering/Resolving]
  - Encephalopathy [Recovering/Resolving]
  - Abdominal pain [Recovering/Resolving]
